FAERS Safety Report 9322036 (Version 1)
Quarter: 2013Q2

REPORT INFORMATION
  Report Type: Spontaneous
  Country: US (occurrence: US)
  Receive Date: 20130531
  Receipt Date: 20130531
  Transmission Date: 20140414
  Serious: Yes (Hospitalization, Disabling)
  Sender: FDA-Public Use
  Company Number: US-BAYER-2013-066769

PATIENT
  Sex: Female

DRUGS (1)
  1. MIRENA [Suspect]
     Indication: MENORRHAGIA
     Dosage: UNK
     Route: 015
     Dates: start: 2012

REACTIONS (5)
  - Cerebrovascular accident [Not Recovered/Not Resolved]
  - Alopecia [None]
  - Weight increased [None]
  - Amnesia [None]
  - Cardiac disorder [None]
